FAERS Safety Report 11992465 (Version 1)
Quarter: 2016Q1

REPORT INFORMATION
  Report Type: Spontaneous
  Country: US (occurrence: None)
  Receive Date: 20160202
  Receipt Date: 20160202
  Transmission Date: 20160526
  Serious: Yes (Other)
  Sender: FDA-Public Use
  Company Number: None

PATIENT
  Age: 6 Year
  Sex: Female
  Weight: 24.95 kg

DRUGS (1)
  1. TOBRAMYCIN 0.3% BAUSCH + LOMB [Suspect]
     Active Substance: TOBRAMYCIN
     Indication: CONJUNCTIVITIS
     Dosage: 1-2 DROPS IN EACH EVEY EVERY 4 HOURS INTO THE EYE
     Route: 047
     Dates: start: 20160129, end: 20160131

REACTIONS (1)
  - Hypersensitivity [None]

NARRATIVE: CASE EVENT DATE: 20160131
